FAERS Safety Report 8020011-7 (Version None)
Quarter: 2012Q1

REPORT INFORMATION
  Report Type: 
  Country: None (occurrence: None)
  Receive Date: 20120103
  Receipt Date: 20111226
  Transmission Date: 20120608
  Serious: Yes (Other)
  Sender: FDA-Public Use
  Company Number: PHHY2011GB112371

PATIENT
  Sex: Female

DRUGS (2)
  1. STATIN [Concomitant]
  2. RAMIPRIL [Suspect]
     Indication: HYPERTENSION
     Dosage: 10 MG, QD
     Route: 048
     Dates: start: 20080401

REACTIONS (2)
  - TENDON RUPTURE [None]
  - MYALGIA [None]
